FAERS Safety Report 5808148-1 (Version None)
Quarter: 2008Q3

REPORT INFORMATION
  Report Type: 
  Country: None (occurrence: None)
  Receive Date: 20080708
  Receipt Date: 20080623
  Transmission Date: 20090109
  Serious: Yes (Other)
  Sender: FDA-Public Use
  Company Number: GB-DEXPHARM-20080690

PATIENT
  Age: 71 Year
  Sex: Female

DRUGS (8)
  1. OMEPRAZOLE [Suspect]
     Dosage: ^1/1 DAYS^ { 20 MG MILLGRAM(S) }
     Dates: start: 20080529
  2. WARFARIN SODIUM [Suspect]
     Dosage: ^1/1 DAYS^ { 5.5 MG MILLGRAM(S) }
  3. DIGOXIN [Concomitant]
  4. DILTIAZEM HCL [Concomitant]
  5. GLICLAZIDE [Concomitant]
  6. LEVOTHYROXINE SODIUM [Concomitant]
  7. LOSARTAN POTASSIUM [Concomitant]
  8. METFORMIN [Concomitant]

REACTIONS (4)
  - DRUG INTERACTION [None]
  - INTERNATIONAL NORMALISED RATIO INCREASED [None]
  - VOMITING [None]
  - WEIGHT DECREASED [None]
